FAERS Safety Report 20372582 (Version 2)
Quarter: 2025Q2

REPORT INFORMATION
  Report Type: Spontaneous
  Country: CA (occurrence: CA)
  Receive Date: 20220125
  Receipt Date: 20250619
  Transmission Date: 20250717
  Serious: Yes (Other)
  Sender: AUROBINDO
  Company Number: CA-MLMSERVICE-20220111-3310853-1

PATIENT
  Sex: Female

DRUGS (12)
  1. DULOXETINE [Interacting]
     Active Substance: DULOXETINE
     Indication: Migraine prophylaxis
     Dosage: 30 MILLIGRAM, ONCE A DAY
     Route: 065
     Dates: start: 201708, end: 201711
  2. DULOXETINE [Interacting]
     Active Substance: DULOXETINE
     Indication: Depression
  3. DULOXETINE [Interacting]
     Active Substance: DULOXETINE
     Indication: Anxiety
  4. SUMATRIPTAN [Interacting]
     Active Substance: SUMATRIPTAN
     Indication: Migraine
     Route: 048
     Dates: start: 201701
  5. KETOROLAC [Concomitant]
     Active Substance: KETOROLAC TROMETHAMINE
     Indication: Product used for unknown indication
     Route: 048
  6. PROMETHAZINE [Concomitant]
     Active Substance: PROMETHAZINE HYDROCHLORIDE
     Indication: Product used for unknown indication
     Route: 048
  7. ESCITALOPRAM [Concomitant]
     Active Substance: ESCITALOPRAM OXALATE
     Indication: Product used for unknown indication
     Route: 048
  8. LEVONORGESTREL [Concomitant]
     Active Substance: LEVONORGESTREL
     Indication: Product used for unknown indication
     Route: 048
  9. ZOLPIDEM [Concomitant]
     Active Substance: ZOLPIDEM TARTRATE
     Indication: Product used for unknown indication
     Route: 048
  10. Loratadine hydrochloride [Concomitant]
     Route: 048
  11. VITAMIN C [Concomitant]
     Active Substance: ASCORBIC ACID
     Indication: Product used for unknown indication
     Dosage: 125 MILLIGRAM, TWO TIMES A DAY
     Route: 048
  12. VITAMIN D [Concomitant]
     Active Substance: VITAMIN D NOS
     Indication: Vitamin D deficiency
     Route: 048

REACTIONS (8)
  - Depressive symptom [Unknown]
  - Depressed mood [Recovered/Resolved]
  - Drug-disease interaction [Recovering/Resolving]
  - Drug interaction [Unknown]
  - Drug ineffective [Recovering/Resolving]
  - Body temperature increased [Recovered/Resolved]
  - Hyperhidrosis [Unknown]
  - Agitation [Unknown]

NARRATIVE: CASE EVENT DATE: 20170101
